FAERS Safety Report 18348636 (Version 1)
Quarter: 2020Q4

REPORT INFORMATION
  Report Type: Other
  Country: MX (occurrence: MX)
  Receive Date: 20201006
  Receipt Date: 20201006
  Transmission Date: 20210114
  Serious: Yes (Other)
  Sender: FDA-Public Use
  Company Number: MX-ROCHE-2686172

PATIENT

DRUGS (2)
  1. OSELTAMIVIR [Suspect]
     Active Substance: OSELTAMIVIR
     Indication: ANTIVIRAL TREATMENT
     Route: 065
  2. NITAZOXANIDE [Suspect]
     Active Substance: NITAZOXANIDE
     Indication: INFLUENZA LIKE ILLNESS
     Route: 065

REACTIONS (3)
  - Immune reconstitution inflammatory syndrome [Unknown]
  - Delirium [Unknown]
  - Neutropenia [Unknown]
